FAERS Safety Report 8204514-8 (Version None)
Quarter: 2012Q1

REPORT INFORMATION
  Report Type: 
  Country: None (occurrence: None)
  Receive Date: 20120309
  Receipt Date: 20120222
  Transmission Date: 20120608
  Serious: Yes (Hospitalization)
  Sender: FDA-Public Use
  Company Number: SAN_00063_2012

PATIENT
  Age: 79 Year

DRUGS (1)
  1. METFORMIN HCL [Suspect]
     Indication: TYPE 2 DIABETES MELLITUS
     Dosage: 850 MG TID

REACTIONS (10)
  - CIRCULATORY COLLAPSE [None]
  - HYPERLACTACIDAEMIA [None]
  - LETHARGY [None]
  - DEHYDRATION [None]
  - LACTIC ACIDOSIS [None]
  - RENAL FAILURE ACUTE [None]
  - HYPOTENSION [None]
  - RESPIRATORY DISTRESS [None]
  - CONFUSIONAL STATE [None]
  - METABOLIC ACIDOSIS [None]
